FAERS Safety Report 15921743 (Version 2)
Quarter: 2019Q1

REPORT INFORMATION
  Report Type: Spontaneous
  Country: US (occurrence: US)
  Receive Date: 20190205
  Receipt Date: 20190219
  Transmission Date: 20190417
  Serious: No
  Sender: FDA-Public Use
  Company Number: US-ALLERGAN-1806017US

PATIENT
  Age: 51 Year
  Sex: Female

DRUGS (8)
  1. BOTOX COSMETIC [Suspect]
     Active Substance: ONABOTULINUMTOXINA
     Dosage: 25 UNITS, SINGLE
     Dates: start: 20150901, end: 20150901
  2. JUVEDERM ULTRA [Suspect]
     Active Substance: HYALURONIC ACID
     Dosage: UNK UNK, SINGLE
     Route: 065
     Dates: start: 20151222, end: 20151222
  3. JUVEDERM ULTRA [Suspect]
     Active Substance: HYALURONIC ACID
     Indication: SKIN WRINKLING
     Dosage: 4 UNITS, SINGLE
     Route: 065
     Dates: start: 20150901, end: 20150901
  4. JUVEDERM ULTRA [Suspect]
     Active Substance: HYALURONIC ACID
     Indication: SKIN WRINKLING
     Dosage: 25 UNITS, SINGLE
     Route: 065
     Dates: start: 20150901, end: 20150901
  5. ACTIQ [Concomitant]
     Active Substance: FENTANYL CITRATE
     Indication: GASTROINTESTINAL PAIN
  6. BOTOX COSMETIC [Suspect]
     Active Substance: ONABOTULINUMTOXINA
     Dosage: 4 UNITS, SINGLE
     Dates: start: 20150901, end: 20150901
  7. BOTOX COSMETIC [Suspect]
     Active Substance: ONABOTULINUMTOXINA
     Indication: SKIN WRINKLING
     Dosage: 15 UNITS, SINGLE
     Route: 030
     Dates: start: 20151222, end: 20151222
  8. ACTIQ [Concomitant]
     Active Substance: FENTANYL CITRATE
     Indication: SPINAL PAIN
     Dosage: UNK
     Route: 048
     Dates: start: 2006

REACTIONS (5)
  - Eyelid ptosis [Recovered/Resolved]
  - Visual impairment [Not Recovered/Not Resolved]
  - Off label use [Unknown]
  - Glaucoma [Unknown]
  - Facial paresis [Unknown]

NARRATIVE: CASE EVENT DATE: 20151222
